FAERS Safety Report 5888035-3 (Version None)
Quarter: 2008Q3

REPORT INFORMATION
  Report Type: 
  Country: None (occurrence: None)
  Receive Date: 20080918
  Receipt Date: 20080911
  Transmission Date: 20090109
  Serious: Yes (Hospitalization)
  Sender: FDA-Public Use
  Company Number: GB-ROCHE-583304

PATIENT
  Sex: Male
  Weight: 99 kg

DRUGS (11)
  1. ORLISTAT [Suspect]
     Indication: OBESITY
     Route: 048
     Dates: start: 20080513, end: 20080818
  2. ADIZEM [Concomitant]
  3. ALANINE [Concomitant]
  4. ASPIRIN [Concomitant]
  5. ATORVASTATIN CALCIUM [Concomitant]
  6. BISOPROLOL FUMARATE [Concomitant]
  7. FENOFIBRATE [Concomitant]
  8. IRON SULPHATE [Concomitant]
  9. FUROSEMIDE [Concomitant]
  10. LOSARTAN [Concomitant]
  11. MEBEVERINE [Concomitant]

REACTIONS (1)
  - MYOCARDIAL INFARCTION [None]
